FAERS Safety Report 25228586 (Version 6)
Quarter: 2025Q2

REPORT INFORMATION
  Report Type: Report from Study
  Country: US (occurrence: US)
  Receive Date: 20250423
  Receipt Date: 20250620
  Transmission Date: 20250716
  Serious: Yes (Other)
  Sender: NOVARTIS
  Company Number: US-002147023-NVSC2024US056536

PATIENT
  Sex: Female

DRUGS (3)
  1. GILENYA [Suspect]
     Active Substance: FINGOLIMOD HYDROCHLORIDE
     Indication: Product used for unknown indication
     Route: 065
  2. KESIMPTA [Suspect]
     Active Substance: OFATUMUMAB
     Indication: Product used for unknown indication
     Dosage: 20 MG, QMO
     Route: 058
     Dates: start: 20240605
  3. KESIMPTA [Suspect]
     Active Substance: OFATUMUMAB
     Dosage: 20 MG, QMO
     Route: 058
     Dates: start: 20241010

REACTIONS (14)
  - Blindness [Unknown]
  - Multiple sclerosis relapse [Unknown]
  - Brain fog [Unknown]
  - Fall [Unknown]
  - Balance disorder [Unknown]
  - Hand fracture [Unknown]
  - Upper limb fracture [Unknown]
  - Lower limb fracture [Unknown]
  - Visual impairment [Unknown]
  - Pain [Unknown]
  - Injury [Unknown]
  - Tremor [Unknown]
  - Accidental exposure to product [Unknown]
  - Product use issue [Unknown]
